FAERS Safety Report 5840232-9 (Version None)
Quarter: 2008Q3

REPORT INFORMATION
  Report Type: 
  Country: None (occurrence: None)
  Receive Date: 20080730
  Receipt Date: 20080320
  Transmission Date: 20090109
  Serious: No
  Sender: FDA-Public Use
  Company Number: 2008-US-000291

PATIENT
  Age: 14 Year
  Sex: Male

DRUGS (4)
  1. INCRELEX [Suspect]
     Indication: GROWTH HORMONE DEFICIENCY
     Dosage: 42 UNITS, BID, SUBCUTANEOUS
     Route: 058
     Dates: start: 20070501
  2. COLESTID [Concomitant]
  3. VITAMIN C /00008001/ (ASCORBIC ACID) [Concomitant]
  4. CALCIUM (CALCIUM) [Concomitant]

REACTIONS (1)
  - HAIR TEXTURE ABNORMAL [None]
